FAERS Safety Report 9241665 (Version 1)
Quarter: 2013Q2

REPORT INFORMATION
  Report Type: Spontaneous
  Country: DE (occurrence: DE)
  Receive Date: 20130419
  Receipt Date: 20130419
  Transmission Date: 20140414
  Serious: Yes (Other)
  Sender: FDA-Public Use
  Company Number: PHHY2013DE038091

PATIENT
  Sex: Female

DRUGS (1)
  1. GILENYA [Suspect]
     Indication: MULTIPLE SCLEROSIS
     Dosage: 0.5 MG, QD
     Route: 048
     Dates: start: 20130410

REACTIONS (5)
  - Sensory loss [Unknown]
  - Peripheral coldness [Unknown]
  - Feeling abnormal [Unknown]
  - Gait disturbance [Unknown]
  - Tremor [Unknown]
